FAERS Safety Report 10252723 (Version 1)
Quarter: 2014Q2

REPORT INFORMATION
  Report Type: Spontaneous
  Country: US (occurrence: US)
  Receive Date: 20140623
  Receipt Date: 20140623
  Transmission Date: 20141212
  Serious: Yes (Other)
  Sender: FDA-Public Use
  Company Number: US-ASTELLAS-2014US007110

PATIENT
  Age: 55 Year
  Sex: Male

DRUGS (6)
  1. TARCEVA [Suspect]
     Indication: PRODUCT USED FOR UNKNOWN INDICATION
     Dates: start: 2014
  2. METOPROLOL [Concomitant]
     Indication: PRODUCT USED FOR UNKNOWN INDICATION
     Route: 065
  3. METOPROLOL [Concomitant]
     Dosage: 50 MG, UNKNOWN FREQ.
     Route: 065
  4. VERAPAMIL [Concomitant]
     Indication: PRODUCT USED FOR UNKNOWN INDICATION
     Route: 065
  5. LAMICTAL [Concomitant]
     Indication: NERVOUSNESS
     Dosage: UNK UNK, UNKNOWN FREQ.
     Route: 065
  6. GABAPENTIN [Concomitant]
     Indication: NERVOUSNESS
     Dosage: UNK UNK, UNKNOWN FREQ.
     Route: 065

REACTIONS (2)
  - Hypotension [Unknown]
  - Inappropriate schedule of drug administration [Unknown]
